FAERS Safety Report 9729283 (Version 2)
Quarter: 2014Q1

REPORT INFORMATION
  Report Type: Spontaneous
  Country: US (occurrence: US)
  Receive Date: 20131204
  Receipt Date: 20140106
  Transmission Date: 20141002
  Serious: Yes (Hospitalization)
  Sender: FDA-Public Use
  Company Number: US-BAYER-2013-147416

PATIENT
  Age: 36 Year
  Sex: Female
  Weight: 97.96 kg

DRUGS (3)
  1. YASMIN [Suspect]
  2. ADVIL [Concomitant]
     Indication: BACK PAIN
     Dosage: AS NEEDED
  3. ALTEPLASE [Concomitant]

REACTIONS (2)
  - Pulmonary embolism [Recovered/Resolved]
  - Venous thrombosis [Recovered/Resolved]
